FAERS Safety Report 9237234 (Version 2)
Quarter: 2013Q2

REPORT INFORMATION
  Report Type: Spontaneous
  Country: US (occurrence: US)
  Receive Date: 20130417
  Receipt Date: 20130522
  Transmission Date: 20140414
  Serious: No
  Sender: FDA-Public Use
  Company Number: US-PFIZER INC-2013116526

PATIENT
  Age: 27 Year
  Sex: Female

DRUGS (1)
  1. CYTOTEC [Suspect]
     Indication: ABORTION SPONTANEOUS
     Dosage: 600 UG, EVERY 4 HRS
     Route: 054
     Dates: start: 20130411, end: 20130411

REACTIONS (2)
  - Off label use [Unknown]
  - Incorrect route of drug administration [Unknown]
